FAERS Safety Report 21881500 (Version 2)
Quarter: 2023Q1

REPORT INFORMATION
  Report Type: Report from Study
  Country: JP (occurrence: JP)
  Receive Date: 20230119
  Receipt Date: 20230203
  Transmission Date: 20230418
  Serious: Yes (Other)
  Sender: FDA-Public Use
  Company Number: JP-JNJFOC-20230123813

PATIENT

DRUGS (1)
  1. DARZALEX [Suspect]
     Active Substance: DARATUMUMAB
     Indication: Product used for unknown indication
     Dosage: DOSE UNKNOWN
     Route: 041

REACTIONS (5)
  - Infusion related reaction [Recovering/Resolving]
  - Pyrexia [Recovering/Resolving]
  - Rhinorrhoea [Recovering/Resolving]
  - Blood pressure increased [Recovering/Resolving]
  - Oxygen saturation decreased [Recovering/Resolving]
